FAERS Safety Report 6928187-7 (Version None)
Quarter: 2010Q3

REPORT INFORMATION
  Report Type: 
  Country: None (occurrence: None)
  Receive Date: 20100817
  Receipt Date: 20100811
  Transmission Date: 20110219
  Serious: Yes (Death, Hospitalization)
  Sender: FDA-Public Use
  Company Number: DE-ROCHE-704872

PATIENT
  Sex: Female
  Weight: 42 kg

DRUGS (4)
  1. TRASTUZUMAB [Suspect]
     Route: 042
     Dates: start: 20100325, end: 20100506
  2. PACLITAXEL [Suspect]
     Route: 042
     Dates: start: 20100325, end: 20100506
  3. EFEROX [Concomitant]
     Indication: HYPOTHYROIDISM
     Route: 048
     Dates: start: 20100315
  4. OPIPRAMOL [Concomitant]
     Indication: SLEEP DISORDER
     Route: 048
     Dates: start: 20100408

REACTIONS (3)
  - ALVEOLITIS FIBROSING [None]
  - PNEUMONIA [None]
  - RESPIRATORY FAILURE [None]
